FAERS Safety Report 9325396 (Version 3)
Quarter: 2013Q3

REPORT INFORMATION
  Report Type: Report from Study
  Country: BR (occurrence: BR)
  Receive Date: 20130604
  Receipt Date: 20130813
  Transmission Date: 20140515
  Serious: Yes (Other)
  Sender: FDA-Public Use
  Company Number: BR-ROCHE-1230217

PATIENT
  Sex: Female
  Weight: 64 kg

DRUGS (11)
  1. PEGASYS [Suspect]
     Indication: HEPATITIS C
     Route: 065
     Dates: start: 20120430, end: 20120819
  2. ENALAPRIL [Concomitant]
  3. RIBAVIRIN [Concomitant]
     Route: 065
     Dates: start: 20120430, end: 20120819
  4. PROPRANOLOL [Concomitant]
  5. METFORMIN [Concomitant]
     Route: 065
     Dates: start: 2011
  6. ATORVASTATIN [Concomitant]
     Route: 065
     Dates: start: 2011
  7. OMEPRAZOLE [Concomitant]
  8. BROMAZEPAN [Concomitant]
     Route: 065
     Dates: start: 20120423, end: 20121220
  9. CITALOPRAM [Concomitant]
     Route: 065
     Dates: start: 20120522, end: 20121023
  10. FOLIC ACID [Concomitant]
     Route: 065
     Dates: start: 20120605, end: 20121005
  11. MACRODANTINA [Concomitant]

REACTIONS (10)
  - Drug ineffective [Unknown]
  - Nervous system disorder [Recovered/Resolved]
  - Visual acuity reduced [Recovered/Resolved]
  - Stress [Recovered/Resolved]
  - Confusional state [Recovered/Resolved]
  - Hypoacusis [Recovered/Resolved]
  - Amnesia [Recovered/Resolved]
  - Joint stiffness [Recovered/Resolved]
  - Muscular weakness [Recovered/Resolved]
  - Memory impairment [Recovered/Resolved]
